FAERS Safety Report 14553316 (Version 1)
Quarter: 2018Q1

REPORT INFORMATION
  Report Type: Spontaneous
  Country: US (occurrence: US)
  Receive Date: 20180216
  Receipt Date: 20180216
  Transmission Date: 20180509
  Serious: No
  Sender: FDA-Public Use
  Company Number: None

PATIENT
  Age: 30 Year
  Sex: Female
  Weight: 99 kg

DRUGS (4)
  1. ONE A DAY VITAMINS [Concomitant]
  2. PCMX SURGICAL SCRUB [Suspect]
     Active Substance: CHLOROXYLENOL
     Indication: INFECTION PROPHYLAXIS
     Dosage: ?          QUANTITY:1 BRUSH;?
     Route: 061
     Dates: start: 20171108, end: 20180105
  3. ZYERTEC [Concomitant]
  4. VITAMIN D [Concomitant]
     Active Substance: CHOLECALCIFEROL

REACTIONS (4)
  - Application site rash [None]
  - Application site swelling [None]
  - Application site urticaria [None]
  - Laceration [None]

NARRATIVE: CASE EVENT DATE: 20171222
